FAERS Safety Report 15022441 (Version 1)
Quarter: 2018Q2

REPORT INFORMATION
  Report Type: Spontaneous
  Country: IL (occurrence: IL)
  Receive Date: 20180618
  Receipt Date: 20180618
  Transmission Date: 20180711
  Serious: Yes (Other)
  Sender: FDA-Public Use
  Company Number: IL-ACTELION-A-CH2018-173716

PATIENT
  Age: 63 Year
  Sex: Female

DRUGS (4)
  1. NORMALOL [Concomitant]
     Active Substance: ATENOLOL
  2. FEXOFENADINE [Concomitant]
     Active Substance: FEXOFENADINE\FEXOFENADINE HYDROCHLORIDE
  3. UPTRAVI [Suspect]
     Active Substance: SELEXIPAG
     Indication: PULMONARY ARTERIAL HYPERTENSION
     Dosage: 200 MCG, BID
     Route: 048
     Dates: start: 20180531, end: 20180603
  4. OMEPRADEX [Concomitant]
     Active Substance: OMEPRAZOLE

REACTIONS (4)
  - Weight increased [Recovered/Resolved]
  - Generalised oedema [Recovered/Resolved]
  - Pyrexia [Recovered/Resolved]
  - Face oedema [Recovered/Resolved]

NARRATIVE: CASE EVENT DATE: 20180603
